FAERS Safety Report 8767806 (Version 1)
Quarter: 2012Q4

REPORT INFORMATION
  Report Type: Report from Study
  Country: CA (occurrence: CA)
  Receive Date: 20120905
  Receipt Date: 20120905
  Transmission Date: 20130627
  Serious: Yes (Other)
  Sender: FDA-Public Use
  Company Number: CA-ROCHE-1112367

PATIENT
  Age: 48 Year
  Sex: Male
  Weight: 86.26 kg

DRUGS (6)
  1. MABTHERA [Suspect]
     Indication: RHEUMATOID ARTHRITIS
     Route: 042
  2. CELEBREX [Concomitant]
  3. OMEGA 3 [Concomitant]
  4. DIPHENHYDRAMINE HCL [Concomitant]
     Indication: PREMEDICATION
     Route: 048
     Dates: start: 20120314, end: 20120314
  5. ACETAMINOPHEN [Concomitant]
     Indication: PREMEDICATION
     Route: 048
     Dates: start: 20120314, end: 20120314
  6. METHYLPREDNISOLONE [Concomitant]
     Indication: PREMEDICATION
     Route: 042
     Dates: start: 20120314, end: 20120314

REACTIONS (5)
  - Hypothyroidism [Unknown]
  - Pruritus [Unknown]
  - Throat irritation [Unknown]
  - Dysphagia [Unknown]
  - Urticaria [Unknown]
